FAERS Safety Report 15759448 (Version 1)
Quarter: 2018Q4

REPORT INFORMATION
  Report Type: Spontaneous
  Country: US (occurrence: US)
  Receive Date: 20181226
  Receipt Date: 20181226
  Transmission Date: 20190205
  Serious: Yes (Other)
  Sender: FDA-Public Use
  Company Number: US-PROVELL PHARMACEUTICALS-2060551

PATIENT
  Age: 41 Year
  Sex: Male

DRUGS (1)
  1. EUTHYROX [Suspect]
     Active Substance: LEVOTHYROXINE SODIUM
     Indication: HYPOTHYROIDISM

REACTIONS (4)
  - Feeling abnormal [Recovered/Resolved]
  - Rhabdomyolysis [Recovered/Resolved]
  - Drug intolerance [None]
  - Myopathy endocrine [Recovered/Resolved]
